FAERS Safety Report 23245689 (Version 1)
Quarter: 2023Q4

REPORT INFORMATION
  Report Type: Spontaneous
  Country: US (occurrence: US)
  Receive Date: 20231130
  Receipt Date: 20231130
  Transmission Date: 20240109
  Serious: Yes (Disabling, Other)
  Sender: FDA-Public Use
  Company Number: US-OPELLA-2023OHG015572

PATIENT
  Sex: Male

DRUGS (1)
  1. GOLD BOND MEDICATED ORIGINAL STRENGTH BODY [Suspect]
     Active Substance: MENTHOL
     Indication: Product used for unknown indication
     Route: 065

REACTIONS (7)
  - Mesothelioma [Unknown]
  - Exposure to chemical pollution [Unknown]
  - Disability [Unknown]
  - Pain [Unknown]
  - Anxiety [Unknown]
  - Discomfort [Unknown]
  - Fear [Unknown]

NARRATIVE: CASE EVENT DATE: 20230815
